FAERS Safety Report 25406463 (Version 1)
Quarter: 2025Q2

REPORT INFORMATION
  Report Type: Spontaneous
  Country: CN (occurrence: None)
  Receive Date: 20250606
  Receipt Date: 20250606
  Transmission Date: 20250716
  Serious: Yes (Other)
  Sender: INCYTE
  Company Number: CN-002147023-NVSC2025CN085489

PATIENT
  Age: 10 Year

DRUGS (3)
  1. RUXOLITINIB [Suspect]
     Active Substance: RUXOLITINIB
     Indication: Familial haemophagocytic lymphohistiocytosis
  2. METHYLPREDNISOLONE [Suspect]
     Active Substance: METHYLPREDNISOLONE
     Indication: Familial haemophagocytic lymphohistiocytosis
     Dosage: 2 MG/KG, QD
     Route: 065
  3. ETOPOSIDE [Suspect]
     Active Substance: ETOPOSIDE
     Indication: Familial haemophagocytic lymphohistiocytosis
     Dosage: 100 MG/M2, QW
     Route: 065

REACTIONS (2)
  - Pulmonary tuberculosis [Recovered/Resolved]
  - Off label use [Unknown]
